FAERS Safety Report 14197557 (Version 2)
Quarter: 2018Q1

REPORT INFORMATION
  Report Type: Spontaneous
  Country: BR (occurrence: BR)
  Receive Date: 20171116
  Receipt Date: 20180115
  Transmission Date: 20180508
  Serious: Yes (Hospitalization, Other)
  Sender: FDA-Public Use
  Company Number: BR-AMGEN-BRASP2017172497

PATIENT
  Age: 45 Year
  Sex: Female

DRUGS (3)
  1. ENBREL [Suspect]
     Active Substance: ETANERCEPT
     Indication: PRODUCT USED FOR UNKNOWN INDICATION
     Dosage: 50MG ONCE A WEEK
     Route: 065
     Dates: start: 2014, end: 201605
  2. ENBREL [Suspect]
     Active Substance: ETANERCEPT
     Indication: RHEUMATOID ARTHRITIS
     Dosage: 50MG ONCE A WEEK
     Route: 065
     Dates: end: 2017
  3. LEFLUNOMIDE. [Concomitant]
     Active Substance: LEFLUNOMIDE
     Indication: ARTHRITIS
     Dosage: UNK UNK, QD
     Dates: end: 2017

REACTIONS (9)
  - Joint swelling [Recovered/Resolved]
  - Intentional product misuse [Recovered/Resolved]
  - Infarction [Recovered/Resolved]
  - Leiomyoma [Recovered/Resolved]
  - Anaemia [Recovered/Resolved]
  - Menstrual disorder [Recovered/Resolved]
  - Thyroid disorder [Recovered/Resolved]
  - Pain [Recovered/Resolved]
  - Amenorrhoea [Recovered/Resolved]

NARRATIVE: CASE EVENT DATE: 201605
